FAERS Safety Report 19224891 (Version 1)
Quarter: 2021Q2

REPORT INFORMATION
  Report Type: Report from Study
  Country: US (occurrence: US)
  Receive Date: 20210506
  Receipt Date: 20210506
  Transmission Date: 20210717
  Serious: Yes (Other)
  Sender: FDA-Public Use
  Company Number: US-MYLANLABS-2021M1026893

PATIENT
  Age: 17 Year
  Sex: Male

DRUGS (30)
  1. TOPIRAMATE. [Suspect]
     Active Substance: TOPIRAMATE
     Indication: PARTIAL SEIZURES
     Dosage: UNK
     Route: 065
  2. NICOTINE. [Concomitant]
     Active Substance: NICOTINE
     Indication: ATONIC SEIZURES
  3. FELBAMATE. [Concomitant]
     Active Substance: FELBAMATE
     Indication: PARTIAL SEIZURES
  4. VALPROIC ACID. [Suspect]
     Active Substance: VALPROIC ACID
     Indication: SEIZURE
     Dosage: UNK
     Route: 065
  5. VALPROIC ACID. [Suspect]
     Active Substance: VALPROIC ACID
     Indication: ATONIC SEIZURES
  6. ZONISAMIDE. [Concomitant]
     Active Substance: ZONISAMIDE
     Indication: ATONIC SEIZURES
  7. CARBAMAZEPINE. [Suspect]
     Active Substance: CARBAMAZEPINE
     Indication: PARTIAL SEIZURES
  8. CARBAMAZEPINE. [Suspect]
     Active Substance: CARBAMAZEPINE
     Indication: ATONIC SEIZURES
  9. NICOTINE. [Concomitant]
     Active Substance: NICOTINE
     Indication: PARTIAL SEIZURES
  10. PHENYTOIN. [Suspect]
     Active Substance: PHENYTOIN
     Indication: ATONIC SEIZURES
  11. CARBAMAZEPINE. [Suspect]
     Active Substance: CARBAMAZEPINE
     Indication: SEIZURE
     Dosage: UNK
     Route: 065
  12. NICOTINE. [Concomitant]
     Active Substance: NICOTINE
     Indication: SEIZURE
     Dosage: 14 MILLIGRAM, QD
     Route: 062
  13. CLOBAZAM. [Concomitant]
     Active Substance: CLOBAZAM
     Indication: GENERALISED TONIC-CLONIC SEIZURE
     Dosage: UNK
     Route: 065
  14. CLOBAZAM. [Concomitant]
     Active Substance: CLOBAZAM
     Indication: PARTIAL SEIZURES
  15. FELBAMATE. [Concomitant]
     Active Substance: FELBAMATE
     Indication: GENERALISED TONIC-CLONIC SEIZURE
     Dosage: UNK
     Route: 065
  16. ZONISAMIDE. [Concomitant]
     Active Substance: ZONISAMIDE
     Indication: GENERALISED TONIC-CLONIC SEIZURE
     Dosage: UNK
     Route: 065
  17. LEVETIRACETAM. [Suspect]
     Active Substance: LEVETIRACETAM
     Indication: SEIZURE
     Dosage: UNK
     Route: 065
  18. LEVETIRACETAM. [Suspect]
     Active Substance: LEVETIRACETAM
     Indication: ATONIC SEIZURES
  19. LEVETIRACETAM. [Suspect]
     Active Substance: LEVETIRACETAM
     Indication: PARTIAL SEIZURES
  20. LACOSAMIDE. [Suspect]
     Active Substance: LACOSAMIDE
     Indication: PARTIAL SEIZURES
  21. VALPROIC ACID. [Suspect]
     Active Substance: VALPROIC ACID
     Indication: PARTIAL SEIZURES
  22. PHENYTOIN. [Suspect]
     Active Substance: PHENYTOIN
     Indication: PARTIAL SEIZURES
  23. CLOBAZAM. [Concomitant]
     Active Substance: CLOBAZAM
     Indication: ATONIC SEIZURES
  24. TOPIRAMATE. [Suspect]
     Active Substance: TOPIRAMATE
     Indication: ATONIC SEIZURES
  25. PHENYTOIN. [Suspect]
     Active Substance: PHENYTOIN
     Indication: SEIZURE
     Route: 065
  26. LACOSAMIDE. [Suspect]
     Active Substance: LACOSAMIDE
     Indication: SEIZURE
     Dosage: UNK
     Route: 065
  27. ZONISAMIDE. [Concomitant]
     Active Substance: ZONISAMIDE
     Indication: PARTIAL SEIZURES
  28. TOPIRAMATE. [Suspect]
     Active Substance: TOPIRAMATE
     Indication: SEIZURE
  29. LACOSAMIDE. [Suspect]
     Active Substance: LACOSAMIDE
     Indication: ATONIC SEIZURES
  30. FELBAMATE. [Concomitant]
     Active Substance: FELBAMATE
     Indication: ATONIC SEIZURES

REACTIONS (1)
  - Treatment failure [Unknown]
